FAERS Safety Report 26163686 (Version 1)
Quarter: 2025Q4

REPORT INFORMATION
  Report Type: Spontaneous
  Country: EU (occurrence: EU)
  Receive Date: 20251216
  Receipt Date: 20251216
  Transmission Date: 20260118
  Serious: Yes (Hospitalization, Other)
  Sender: OTSUKA
  Company Number: None

PATIENT
  Age: 47 Year
  Sex: Male

DRUGS (3)
  1. ABILIFY [Suspect]
     Active Substance: ARIPIPRAZOLE
     Indication: Schizoaffective disorder
     Dosage: UNK (0 MG)
     Route: 061
  2. QUETIAPINE FUMARATE [Suspect]
     Active Substance: QUETIAPINE FUMARATE
     Indication: Product used for unknown indication
     Dosage: UNK (1 - 200 MG)
     Route: 061
  3. OXAZEPAM [Suspect]
     Active Substance: OXAZEPAM
     Indication: Urine analysis
     Dosage: 75 MG
     Route: 061

REACTIONS (7)
  - Nicotine dependence [Recovered/Resolved]
  - Alcoholism [Recovered/Resolved]
  - Drug dependence [Recovered/Resolved]
  - Confusional state [Recovered/Resolved]
  - Suicidal ideation [Recovered/Resolved]
  - Anxiety [Recovered/Resolved]
  - Drug abuse [Unknown]
